FAERS Safety Report 9790258 (Version 2)
Quarter: 2013Q4

REPORT INFORMATION
  Report Type: Spontaneous
  Country: US (occurrence: US)
  Receive Date: 20131231
  Receipt Date: 20131231
  Transmission Date: 20140711
  Serious: Yes (Other)
  Sender: FDA-Public Use
  Company Number: US-SHIRE-ALL1-2013-07171

PATIENT
  Age: 21 Year
  Sex: Female
  Weight: 56.69 kg

DRUGS (2)
  1. LIALDA [Suspect]
     Indication: COLITIS ULCERATIVE
     Dosage: 4.8 G(FOUR 1.2 MG TABLETS), 1X/DAY:QD
     Route: 048
     Dates: start: 20131002
  2. PREDNISONE [Concomitant]
     Indication: COLITIS ULCERATIVE
     Dosage: 30 MG, UNKNOWN
     Route: 065
     Dates: start: 20130918

REACTIONS (4)
  - Abasia [Recovered/Resolved]
  - Muscle spasms [Recovered/Resolved]
  - Tremor [Not Recovered/Not Resolved]
  - Abdominal pain [Unknown]
